FAERS Safety Report 9795990 (Version 3)
Quarter: 2014Q2

REPORT INFORMATION
  Report Type: Report from Study
  Country: JP (occurrence: JP)
  Receive Date: 20140103
  Receipt Date: 20140527
  Transmission Date: 20141212
  Serious: Yes (Hospitalization, Other)
  Sender: FDA-Public Use
  Company Number: JP-ABBVIE-12P-087-0948952-00

PATIENT
  Age: 51 Year
  Sex: Male
  Weight: 67 kg

DRUGS (10)
  1. HUMIRA [Suspect]
     Indication: RHEUMATOID ARTHRITIS
     Route: 058
     Dates: start: 20111102, end: 20120606
  2. HUMIRA [Suspect]
  3. RHEUMATREX [Suspect]
     Indication: RHEUMATOID ARTHRITIS
     Dosage: 6 MG/WEEK
     Route: 048
     Dates: start: 20110805, end: 20120617
  4. FOLIC ACID [Concomitant]
     Indication: PROPHYLAXIS
     Dosage: 5 MG/WEEK
     Route: 048
     Dates: start: 20110805
  5. FOLIC ACID [Concomitant]
     Indication: ADVERSE DRUG REACTION
  6. LOXOPROFEN SODIUM [Concomitant]
     Indication: RHEUMATOID ARTHRITIS
     Route: 048
     Dates: end: 20111129
  7. OMEPRAZOLE [Concomitant]
     Indication: PRODUCT USED FOR UNKNOWN INDICATION
     Route: 048
  8. REBAMIPIDE [Concomitant]
     Indication: PRODUCT USED FOR UNKNOWN INDICATION
     Route: 048
     Dates: end: 20111129
  9. PREDNISOLONE [Concomitant]
     Indication: PRODUCT USED FOR UNKNOWN INDICATION
     Dates: start: 20120321, end: 20120515
  10. PREDNISOLONE [Concomitant]
     Dates: start: 20120516, end: 20120620

REACTIONS (5)
  - Organising pneumonia [Recovering/Resolving]
  - Malaise [Unknown]
  - Arthralgia [Unknown]
  - Foreign body [Unknown]
  - Rheumatoid arthritis [Unknown]
